FAERS Safety Report 17715362 (Version 1)
Quarter: 2020Q2

REPORT INFORMATION
  Report Type: Spontaneous
  Country: ES (occurrence: ES)
  Receive Date: 20200427
  Receipt Date: 20200427
  Transmission Date: 20200714
  Serious: Yes (Other)
  Sender: FDA-Public Use
  Company Number: NVSC2020ES110570

PATIENT
  Age: 8 Month
  Sex: Female
  Weight: 5.8 kg

DRUGS (2)
  1. OMEPRAZOLE. [Suspect]
     Active Substance: OMEPRAZOLE
     Indication: GASTROOESOPHAGEAL REFLUX DISEASE
     Dosage: 0.83 MG/KG, QD (4.8 MG CADA 24 HORAS) (1.2 ML DE SOLUCI?N 2MG/ML CADA 12 HORAS)
     Route: 048
     Dates: start: 20190418, end: 20190518
  2. MINOXIDIL. [Suspect]
     Active Substance: MINOXIDIL
     Indication: PRODUCT USED FOR UNKNOWN INDICATION
     Dosage: UNK
     Route: 048
     Dates: start: 20190418, end: 20190518

REACTIONS (2)
  - Product formulation issue [Recovered/Resolved]
  - Hypertrichosis [Recovered/Resolved]

NARRATIVE: CASE EVENT DATE: 20190418
